FAERS Safety Report 25210033 (Version 4)
Quarter: 2025Q3

REPORT INFORMATION
  Report Type: Spontaneous
  Country: US (occurrence: US)
  Receive Date: 20250417
  Receipt Date: 20250707
  Transmission Date: 20251021
  Serious: Yes (Other)
  Sender: BRISTOL-MYERS SQUIBB COMPANY
  Company Number: US-BRISTOL-MYERS SQUIBB COMPANY-2025-053019

PATIENT
  Age: 73 Year
  Sex: Female

DRUGS (4)
  1. ELIQUIS [Suspect]
     Active Substance: APIXABAN
     Indication: Product used for unknown indication
  2. ELIQUIS [Suspect]
     Active Substance: APIXABAN
     Dates: start: 202408
  3. VYNDAMAX [Suspect]
     Active Substance: TAFAMIDIS
     Indication: Product used for unknown indication
     Dates: start: 20240425
  4. GABAPENTIN [Suspect]
     Active Substance: GABAPENTIN
     Indication: Product used for unknown indication
     Dates: end: 202408

REACTIONS (22)
  - Musculoskeletal chest pain [Not Recovered/Not Resolved]
  - Abdominal pain [Not Recovered/Not Resolved]
  - Pain in extremity [Not Recovered/Not Resolved]
  - Paraesthesia [Recovering/Resolving]
  - Somnolence [Unknown]
  - Dizziness [Unknown]
  - Fatigue [Unknown]
  - Vision blurred [Unknown]
  - Contusion [Unknown]
  - Accident [Unknown]
  - Rhinorrhoea [Unknown]
  - Cyst [Unknown]
  - Carpal tunnel syndrome [Unknown]
  - Breast mass [Unknown]
  - Generalised oedema [Unknown]
  - Vaginal discharge [Not Recovered/Not Resolved]
  - Pain [Unknown]
  - Fungal infection [Unknown]
  - Arthropathy [Unknown]
  - Haemorrhage [Unknown]
  - Skin discolouration [Unknown]
  - Peripheral swelling [Unknown]

NARRATIVE: CASE EVENT DATE: 20240101
